FAERS Safety Report 8308697-0 (Version None)
Quarter: 2012Q2

REPORT INFORMATION
  Report Type: 
  Country: None (occurrence: None)
  Receive Date: 20120421
  Receipt Date: 20120421
  Transmission Date: 20120825
  Serious: Yes (Life-Threatening)
  Sender: FDA-Public Use
  Company Number: None

PATIENT
  Sex: Male
  Weight: 91.6266 kg

DRUGS (2)
  1. FERAHEME [Suspect]
     Indication: ANAEMIA
     Dosage: 510 MG IV PUSH IV
     Route: 042
     Dates: start: 20111216
  2. FERAHEME [Suspect]
     Indication: ANAEMIA
     Dosage: 510 MG IV PUSH IV
     Route: 042
     Dates: start: 20111209

REACTIONS (3)
  - DIZZINESS [None]
  - FLUSHING [None]
  - DYSPNOEA [None]
